FAERS Safety Report 4811015-3 (Version None)
Quarter: 2005Q4

REPORT INFORMATION
  Report Type: 
  Country: None (occurrence: None)
  Receive Date: 20051027
  Receipt Date: 20051024
  Transmission Date: 20060501
  Serious: Yes (Hospitalization)
  Sender: FDA-Public Use
  Company Number: US-JNJFOC-20050502517

PATIENT
  Sex: Female
  Weight: 77.11 kg

DRUGS (2)
  1. FENTANYL [Suspect]
     Route: 062
     Dates: start: 20050322, end: 20050507
  2. ROXICODONE [Concomitant]
     Indication: PAIN
     Dosage: 5 MG AS NEEDED
     Route: 048

REACTIONS (11)
  - ANXIETY [None]
  - APPLICATION SITE URTICARIA [None]
  - GENITAL PRURITUS FEMALE [None]
  - HYPERHIDROSIS [None]
  - MUSCLE TWITCHING [None]
  - PERIPHERAL COLDNESS [None]
  - RASH GENERALISED [None]
  - SWOLLEN TONGUE [None]
  - TONGUE DISORDER [None]
  - URTICARIA [None]
  - VAGINAL SWELLING [None]
